FAERS Safety Report 5140236-8 (Version None)
Quarter: 2006Q4

REPORT INFORMATION
  Report Type: 
  Country: None (occurrence: None)
  Receive Date: 20061031
  Receipt Date: 20060314
  Transmission Date: 20070319
  Serious: Yes (Hospitalization)
  Sender: FDA-Public Use
  Company Number: HQWYE393617MAR06

PATIENT
  Sex: Male

DRUGS (14)
  1. ENBREL [Suspect]
     Indication: RHEUMATOID ARTHRITIS
     Route: 058
     Dates: start: 20050818, end: 20060116
  2. ENBREL [Suspect]
     Route: 058
     Dates: start: 20060217, end: 20060626
  3. PREDONINE [Suspect]
     Indication: RHEUMATOID ARTHRITIS
     Route: 048
     Dates: start: 19960101, end: 20060626
  4. POLAPREZINC [Concomitant]
     Route: 048
     Dates: start: 20040101, end: 20060626
  5. ONE-ALPHA [Concomitant]
     Route: 048
     Dates: start: 20040101, end: 20060626
  6. DOGMATYL [Concomitant]
     Route: 048
     Dates: start: 20040101, end: 20060626
  7. METOLATE [Concomitant]
     Dosage: UNKNOWN
     Route: 048
     Dates: start: 20051125, end: 20060626
  8. CYTOTEC [Concomitant]
     Route: 048
     Dates: start: 20040101, end: 20060626
  9. DORAL [Concomitant]
     Route: 048
     Dates: start: 20040101, end: 20060626
  10. BERIZYM [Concomitant]
     Route: 048
     Dates: start: 20040101, end: 20060626
  11. PARIET [Concomitant]
     Route: 048
     Dates: start: 20051101, end: 20060626
  12. METHOTREXATE [Concomitant]
     Indication: RHEUMATOID ARTHRITIS
     Dosage: 10 MG
     Route: 048
     Dates: start: 20040131, end: 20041207
  13. METHOTREXATE [Concomitant]
     Dosage: 12.5 MG
     Route: 048
     Dates: start: 20041207
  14. CLINORIL [Concomitant]
     Indication: RHEUMATOID ARTHRITIS
     Route: 048
     Dates: start: 20040101, end: 20060626

REACTIONS (7)
  - ABDOMINAL PAIN [None]
  - ANOREXIA [None]
  - INSOMNIA [None]
  - NAUSEA [None]
  - OESOPHAGEAL CANDIDIASIS [None]
  - SPINAL COMPRESSION FRACTURE [None]
  - SPONDYLITIS [None]
